FAERS Safety Report 14103750 (Version 4)
Quarter: 2017Q4

REPORT INFORMATION
  Report Type: Spontaneous
  Country: JP (occurrence: JP)
  Receive Date: 20171018
  Receipt Date: 20171124
  Transmission Date: 20180321
  Serious: Yes (Death)
  Sender: FDA-Public Use
  Company Number: JP-ASTRAZENECA-2017SF06440

PATIENT
  Age: 29164 Day
  Sex: Male
  Weight: 45 kg

DRUGS (16)
  1. IRESSA [Suspect]
     Active Substance: GEFITINIB
     Indication: LUNG ADENOCARCINOMA
     Route: 048
     Dates: start: 20170901, end: 20170905
  2. OXYCONTIN [Concomitant]
     Active Substance: OXYCODONE HYDROCHLORIDE
     Indication: PAIN
     Route: 048
     Dates: start: 20170905, end: 20170906
  3. LAC-B [Concomitant]
     Active Substance: BIFIDOBACTERIUM SPP.
     Indication: CONSTIPATION
     Dosage: DOSE UNKNOWN, TWICE A DAY
     Route: 048
     Dates: end: 20170907
  4. TAKECAB [Concomitant]
     Active Substance: VONOPRAZAN FUMURATE
     Route: 048
     Dates: end: 20170907
  5. AMBROXOL HYDROCHLORIDE [Concomitant]
     Active Substance: AMBROXOL HYDROCHLORIDE
     Route: 048
     Dates: end: 20170907
  6. DILTIAZEM HYDROCHLORIDE R [Concomitant]
     Active Substance: DILTIAZEM HYDROCHLORIDE
     Indication: PRINZMETAL ANGINA
     Route: 048
  7. BAYASPIRIN [Concomitant]
     Active Substance: ASPIRIN
     Indication: PRINZMETAL ANGINA
     Route: 048
     Dates: end: 20170906
  8. MAGMITT [Concomitant]
     Active Substance: MAGNESIUM OXIDE
     Indication: CONSTIPATION
     Route: 048
     Dates: end: 20170907
  9. OXINORM (ORGOTEIN) [Concomitant]
     Active Substance: ORGOTEIN
     Indication: CANCER PAIN
     Dosage: AS REQUIRED/DOSE UNKNOWN
     Route: 048
     Dates: start: 20170901
  10. CLOPIDOGREL [Concomitant]
     Active Substance: CLOPIDOGREL BISULFATE
     Indication: CEREBRAL INFARCTION
     Route: 048
     Dates: end: 20170906
  11. ETIZOLAM [Concomitant]
     Active Substance: ETIZOLAM
     Indication: INSOMNIA
     Dosage: AS REQUIRED/DOSE UNKNOWN
     Route: 048
     Dates: end: 20170906
  12. ZOLEDRONIC ACID HYDRATE [Concomitant]
     Active Substance: ZOLEDRONIC ACID
     Indication: METASTASES TO BONE
     Route: 041
     Dates: start: 20170905, end: 20170905
  13. CALONAL [Concomitant]
     Active Substance: ACETAMINOPHEN
     Indication: PYREXIA
     Dosage: AS REQUIRED/DOSE UNKNOWN
     Route: 048
     Dates: start: 20170905
  14. TAMSULOSIN HYDROCHLORIDE. [Concomitant]
     Active Substance: TAMSULOSIN HYDROCHLORIDE
     Indication: BENIGN PROSTATIC HYPERPLASIA
     Route: 048
     Dates: end: 20170906
  15. BIO-THREE [Concomitant]
     Active Substance: HERBALS
     Indication: DIARRHOEA
     Dosage: DOSE UNKNOWN, THREE TIMES A DAY
     Route: 048
     Dates: end: 20170906
  16. SULPIRIDE [Concomitant]
     Active Substance: SULPIRIDE
     Dosage: DOSE UNKNOWN, THREE TIMES A DAY
     Route: 048
     Dates: end: 20170907

REACTIONS (2)
  - Interstitial lung disease [Fatal]
  - Blood pressure decreased [Unknown]

NARRATIVE: CASE EVENT DATE: 20170901
